FAERS Safety Report 14102645 (Version 6)
Quarter: 2018Q4

REPORT INFORMATION
  Report Type: Spontaneous
  Country: US (occurrence: US)
  Receive Date: 20171018
  Receipt Date: 20181213
  Transmission Date: 20190204
  Serious: No
  Sender: FDA-Public Use
  Company Number: US-ACTELION-A-NJ2017-153856

PATIENT
  Age: 43 Year
  Sex: Female

DRUGS (11)
  1. METOPROLOL. [Concomitant]
     Active Substance: METOPROLOL
  2. ABILIFY [Concomitant]
     Active Substance: ARIPIPRAZOLE
  3. PRISTIQ EXTENDED-RELEASE [Concomitant]
     Active Substance: DESVENLAFAXINE SUCCINATE
  4. LEFLUNOMIDE. [Concomitant]
     Active Substance: LEFLUNOMIDE
  5. LETAIRIS [Concomitant]
     Active Substance: AMBRISENTAN
     Dosage: 10 MG, QD
     Dates: start: 20170106
  6. VELETRI [Suspect]
     Active Substance: EPOPROSTENOL
     Indication: PULMONARY ARTERIAL HYPERTENSION
     Dosage: 4 NG/KG, PER MIN
     Route: 042
     Dates: start: 20160516
  7. VELETRI [Suspect]
     Active Substance: EPOPROSTENOL
     Dosage: 40 NG/KG, PER MIN
     Route: 042
     Dates: start: 20170524
  8. SILDENAFIL. [Concomitant]
     Active Substance: SILDENAFIL
  9. MECLIZINE [Concomitant]
     Active Substance: MECLIZINE HYDROCHLORIDE
  10. SPIRONOLACTONE. [Concomitant]
     Active Substance: SPIRONOLACTONE
  11. FUROSEMIDE. [Concomitant]
     Active Substance: FUROSEMIDE

REACTIONS (12)
  - Flushing [Recovering/Resolving]
  - Headache [Not Recovered/Not Resolved]
  - Nausea [Not Recovered/Not Resolved]
  - Skin irritation [Unknown]
  - Chest pain [Not Recovered/Not Resolved]
  - Pain in jaw [Unknown]
  - Pain in extremity [Not Recovered/Not Resolved]
  - Myalgia [Not Recovered/Not Resolved]
  - Thirst [Unknown]
  - Dyspnoea [Unknown]
  - Chest discomfort [Not Recovered/Not Resolved]
  - Vomiting [Unknown]

NARRATIVE: CASE EVENT DATE: 20170510
